FAERS Safety Report 4998560-5 (Version None)
Quarter: 2006Q2

REPORT INFORMATION
  Report Type: 
  Country: None (occurrence: None)
  Receive Date: 20060508
  Receipt Date: 20060426
  Transmission Date: 20061013
  Serious: Yes (Death)
  Sender: FDA-Public Use
  Company Number: 2006058553

PATIENT
  Age: 72 Year
  Sex: Male
  Weight: 85 kg

DRUGS (7)
  1. MINIPRESS XL [Suspect]
     Indication: HYPERTENSION
     Dosage: 5 MG (5 MG, 1 IN 1 D), ORAL
     Route: 048
     Dates: start: 20060401, end: 20060401
  2. DHA (OMEGA-3 TRIGLYCERIDES) [Concomitant]
  3. INSULIN [Concomitant]
  4. ACE INHIBITOR NOS (ACE INHIBITOR NOS) [Concomitant]
  5. ASPIRIN [Concomitant]
  6. CLOPIDOGREL (CLOPIDOGREL) [Concomitant]
  7. ANGIOTENSIN II ANTAGONISTS (ANGIOTENSIN II ANTAGONISTS) [Concomitant]

REACTIONS (2)
  - ACUTE LEFT VENTRICULAR FAILURE [None]
  - DYSPNOEA [None]
